FAERS Safety Report 7124635-0 (Version None)
Quarter: 2010Q4

REPORT INFORMATION
  Report Type: 
  Country: None (occurrence: None)
  Receive Date: 20101122
  Receipt Date: 20101122
  Transmission Date: 20110411
  Serious: Yes (Life-Threatening, Hospitalization, Disabling, Other)
  Sender: FDA-Public Use
  Company Number: None

PATIENT
  Age: 23 Year
  Sex: Female
  Weight: 72.5755 kg

DRUGS (1)
  1. MIRENA [Suspect]
     Indication: CONTRACEPTION
     Dosage: 20 MCG PER DAY INTRA-UTERINE
     Route: 015
     Dates: start: 20100803, end: 20101117

REACTIONS (5)
  - COMPLICATION OF DEVICE INSERTION [None]
  - DYSMENORRHOEA [None]
  - HAEMORRHAGE [None]
  - UTERINE HAEMORRHAGE [None]
  - UTERINE PERFORATION [None]
